FAERS Safety Report 5491050-5 (Version None)
Quarter: 2007Q4

REPORT INFORMATION
  Report Type: 
  Country: None (occurrence: None)
  Receive Date: 20071019
  Receipt Date: 20071009
  Transmission Date: 20080405
  Serious: Yes (Other)
  Sender: FDA-Public Use
  Company Number: US-PFIZER INC-2006130767

PATIENT
  Sex: Female
  Weight: 63.5 kg

DRUGS (2)
  1. ZOLOFT [Suspect]
     Indication: DEPRESSION
  2. ZOLOFT [Suspect]
     Indication: SLEEP DISORDER

REACTIONS (5)
  - EAR DISORDER [None]
  - HYPERACUSIS [None]
  - HYPOACUSIS [None]
  - OTOTOXICITY [None]
  - TINNITUS [None]
